FAERS Safety Report 12683837 (Version 3)
Quarter: 2016Q4

REPORT INFORMATION
  Report Type: Spontaneous
  Country: US (occurrence: US)
  Receive Date: 20160825
  Receipt Date: 20161031
  Transmission Date: 20170207
  Serious: No
  Sender: FDA-Public Use
  Company Number: US-009507513-1608USA006457

PATIENT
  Sex: Female

DRUGS (1)
  1. NUVARING [Suspect]
     Active Substance: ETHINYL ESTRADIOL\ETONOGESTREL
     Indication: POLYCYSTIC OVARIES
     Dosage: 1 RING, EVERY 4 WEEKS
     Route: 067
     Dates: start: 201604

REACTIONS (7)
  - Metrorrhagia [Unknown]
  - Eczema [Unknown]
  - Inappropriate schedule of drug administration [Unknown]
  - Acne [Unknown]
  - Dysmenorrhoea [Unknown]
  - Product use issue [Unknown]
  - Amenorrhoea [Unknown]

NARRATIVE: CASE EVENT DATE: 2016
